FAERS Safety Report 5102371-X (Version None)
Quarter: 2006Q3

REPORT INFORMATION
  Report Type: 
  Country: None (occurrence: None)
  Receive Date: 20060912
  Receipt Date: 20060731
  Transmission Date: 20061208
  Serious: Yes (Other)
  Sender: FDA-Public Use
  Company Number: US-GLAXOSMITHKLINE-A0614199A

PATIENT
  Age: 73 Year
  Sex: Female

DRUGS (16)
  1. FLOVENT [Suspect]
     Indication: ASTHMA
     Dosage: 2PUFF TWICE PER DAY
     Route: 055
     Dates: start: 20060718
  2. ACTOS [Concomitant]
  3. ALBUTEROL [Concomitant]
  4. COUMADIN [Concomitant]
  5. FUROSEMIDE [Concomitant]
  6. GABAPENTIN [Concomitant]
  7. LEVOTHYROXINE SODIUM [Concomitant]
  8. LOVASTATIN [Concomitant]
  9. PREVACID [Concomitant]
  10. SINGULAIR [Concomitant]
  11. ZOLOFT [Concomitant]
  12. GLIPIZIDE [Concomitant]
  13. AVAPRO [Concomitant]
  14. TYLENOL [Concomitant]
  15. MAGNESIUM OXIDE [Concomitant]
  16. CINNAMON POWDER [Concomitant]

REACTIONS (6)
  - ASTHMA [None]
  - DYSPNOEA [None]
  - HEADACHE [None]
  - PHARMACEUTICAL PRODUCT COMPLAINT [None]
  - RESPIRATORY TRACT CONGESTION [None]
  - WHEEZING [None]
